FAERS Safety Report 24055994 (Version 2)
Quarter: 2024Q3

REPORT INFORMATION
  Report Type: Spontaneous
  Country: CN (occurrence: CN)
  Receive Date: 20240705
  Receipt Date: 20240725
  Transmission Date: 20241017
  Serious: Yes (Death, Life-Threatening, Hospitalization, Other)
  Sender: PFIZER
  Company Number: CN-PFIZER INC-PV202400087552

PATIENT
  Age: 68 Year
  Sex: Male

DRUGS (4)
  1. EPIRUBICIN [Suspect]
     Active Substance: EPIRUBICIN
     Indication: Hepatic cancer
     Dosage: 50 MG, 1X/DAY (HEPATIC ARTERY PERFUSION)
     Dates: start: 20240625, end: 20240625
  2. FLUOROURACIL [Suspect]
     Active Substance: FLUOROURACIL
     Indication: Hepatic cancer
     Dosage: 500 MG, 1X/DAY (HEPATIC ARTERY PERFUSION)
     Dates: start: 20240625, end: 20240625
  3. RALTITREXED [Suspect]
     Active Substance: RALTITREXED
     Indication: Hepatic cancer
     Dosage: 4 MG, 1X/DAY (HEPATIC ARTERY PERFUSION)
     Dates: start: 20240625, end: 20240625
  4. IODINE [Suspect]
     Active Substance: IODINE
     Indication: Hepatic cancer
     Dosage: 20 ML, 1X/DAY (HEPATIC ARTERY PERFUSION)
     Dates: start: 20240625, end: 20240625

REACTIONS (6)
  - Hepatic function abnormal [Fatal]
  - Liver injury [Fatal]
  - Unresponsive to stimuli [Fatal]
  - Oxygen saturation decreased [Fatal]
  - Cardiac arrest [Fatal]
  - Respiratory arrest [Fatal]

NARRATIVE: CASE EVENT DATE: 20240628
